FAERS Safety Report 5675191-5 (Version None)
Quarter: 2008Q2

REPORT INFORMATION
  Report Type: 
  Country: None (occurrence: None)
  Receive Date: 20080303
  Receipt Date: 20070816
  Transmission Date: 20081010
  Serious: Yes (Hospitalization)
  Sender: FDA-Public Use
  Company Number: RB-7730-2007

PATIENT
  Sex: Female
  Weight: 3.1752 kg

DRUGS (2)
  1. SUBUTEX [Suspect]
     Dosage: 8 MG TID TRANSPLACENTAL
     Route: 064
     Dates: start: 20060925, end: 20070217
  2. COCAINE [Suspect]

REACTIONS (3)
  - DRUG EXPOSURE DURING PREGNANCY [None]
  - DRUG WITHDRAWAL SYNDROME NEONATAL [None]
  - VOMITING [None]
